FAERS Safety Report 9267927 (Version 1)
Quarter: 2013Q2

REPORT INFORMATION
  Report Type: Spontaneous
  Country: NL (occurrence: NL)
  Receive Date: 20130502
  Receipt Date: 20130502
  Transmission Date: 20140414
  Serious: Yes (Hospitalization, Other)
  Sender: FDA-Public Use
  Company Number: NL-MYLANLABS-2013S1008898

PATIENT
  Age: 60 Year
  Sex: Male

DRUGS (6)
  1. OLANZAPINE [Suspect]
     Indication: PROPHYLAXIS
  2. PRAMIPEXOLE [Suspect]
     Indication: RESTLESS LEGS SYNDROME
  3. LITHIUM [Concomitant]
  4. MIRTAZAPINE [Concomitant]
  5. MIRTAZAPINE [Concomitant]
  6. OXAZEPAM [Concomitant]
     Dosage: 10 TO 30 MG

REACTIONS (2)
  - Drug interaction [Not Recovered/Not Resolved]
  - Mania [Not Recovered/Not Resolved]
